FAERS Safety Report 19431819 (Version 2)
Quarter: 2021Q3

REPORT INFORMATION
  Report Type: Report from Study
  Country: US (occurrence: US)
  Receive Date: 20210617
  Receipt Date: 20210802
  Transmission Date: 20211014
  Serious: Yes (Other)
  Sender: FDA-Public Use
  Company Number: US-MYLANLABS-2021M1035149

PATIENT
  Age: 44 Year
  Sex: Male
  Weight: 85.73 kg

DRUGS (2)
  1. EPIPEN [Suspect]
     Active Substance: EPINEPHRINE
     Indication: ALLERGY TO ARTHROPOD STING
     Dosage: UNK
     Route: 065
     Dates: start: 20150905, end: 20150905
  2. NORPACE CR [Concomitant]
     Active Substance: DISOPYRAMIDE PHOSPHATE
     Dosage: UNK

REACTIONS (4)
  - Cardiac arrest [Recovered/Resolved]
  - Arrhythmia [Recovered/Resolved]
  - Myocardial infarction [Recovered/Resolved]
  - Ventricular fibrillation [Recovered/Resolved]

NARRATIVE: CASE EVENT DATE: 20150905
